FAERS Safety Report 4709144-8 (Version None)
Quarter: 2005Q3

REPORT INFORMATION
  Report Type: 
  Country: None (occurrence: None)
  Receive Date: 20050708
  Receipt Date: 20050629
  Transmission Date: 20060218
  Serious: Yes (Other)
  Sender: FDA-Public Use
  Company Number: PHBS2005JP09534

PATIENT
  Age: 49 Year
  Sex: Male

DRUGS (4)
  1. CYCLOSPORINE [Suspect]
     Indication: RENAL TRANSPLANT
     Route: 065
  2. CELLCEPT [Concomitant]
     Indication: RENAL TRANSPLANT
  3. STEROIDS NOS [Concomitant]
     Indication: RENAL TRANSPLANT
  4. SIMULECT [Suspect]
     Indication: RENAL TRANSPLANT
     Route: 065

REACTIONS (2)
  - CYTOMEGALOVIRUS INFECTION [None]
  - PANCREATIC PSEUDOCYST [None]
